FAERS Safety Report 6395394-4 (Version None)
Quarter: 2009Q4

REPORT INFORMATION
  Report Type: 
  Country: None (occurrence: None)
  Receive Date: 20091009
  Receipt Date: 20091002
  Transmission Date: 20100525
  Serious: Yes (Hospitalization)
  Sender: FDA-Public Use
  Company Number: US-ELI_LILLY_AND_COMPANY-US200909005260

PATIENT
  Sex: Male
  Weight: 97.959 kg

DRUGS (10)
  1. BYETTA [Suspect]
     Indication: TYPE 2 DIABETES MELLITUS
     Dosage: 5 UG, 2/D
     Dates: start: 20060101
  2. GLIPIZIDE [Concomitant]
     Dosage: 10 MG, 2/D
  3. LANTUS [Concomitant]
     Dosage: 35 U, EACH EVENING
  4. DOXAZOSIN MESYLATE [Concomitant]
  5. COUMADIN [Concomitant]
  6. TRIAMTERENE AND HYDROCHLOROTHIAZIDE [Concomitant]
  7. LASIX [Concomitant]
  8. KLOR-CON [Concomitant]
  9. ATACAND [Concomitant]
  10. FISH OIL [Concomitant]

REACTIONS (4)
  - COLON CANCER STAGE I [None]
  - DEVICE MISUSE [None]
  - DRUG DOSE OMISSION [None]
  - OFF LABEL USE [None]
